FAERS Safety Report 17788831 (Version 1)
Quarter: 2020Q2

REPORT INFORMATION
  Report Type: Spontaneous
  Country: US (occurrence: US)
  Receive Date: 20200515
  Receipt Date: 20200515
  Transmission Date: 20200714
  Serious: Yes (Hospitalization, Other)
  Sender: FDA-Public Use
  Company Number: US-SA-2020SA121569

PATIENT
  Age: 89 Year
  Sex: Male

DRUGS (3)
  1. XTANDI [Interacting]
     Active Substance: ENZALUTAMIDE
     Indication: PROSTATE CANCER
     Dosage: 160 MG, QD
     Route: 048
     Dates: start: 201701, end: 201708
  2. XTANDI [Interacting]
     Active Substance: ENZALUTAMIDE
     Dosage: 80 MG
     Route: 048
     Dates: start: 201811, end: 201908
  3. PLAVIX [Suspect]
     Active Substance: CLOPIDOGREL BISULFATE
     Indication: PRODUCT USED FOR UNKNOWN INDICATION
     Dosage: UNK
     Route: 065

REACTIONS (8)
  - Terminal state [Recovered/Resolved]
  - Asthenia [Recovered/Resolved]
  - Drug interaction [Unknown]
  - Fall [Recovered/Resolved]
  - Intentional dose omission [Unknown]
  - Fatigue [Recovered/Resolved]
  - Pulmonary contusion [Recovered/Resolved]
  - Haemorrhage [Recovered/Resolved]

NARRATIVE: CASE EVENT DATE: 201708
